FAERS Safety Report 6042096-X (Version None)
Quarter: 2009Q1

REPORT INFORMATION
  Report Type: 
  Country: None (occurrence: None)
  Receive Date: 20090116
  Receipt Date: 20090107
  Transmission Date: 20090719
  Serious: Yes (Other)
  Sender: FDA-Public Use
  Company Number: PHBS2009NL00455

PATIENT
  Age: 71 Year
  Sex: Female

DRUGS (1)
  1. PAMIDRONATE DISODIUM [Suspect]
     Indication: OSTEOPOROSIS
     Route: 042

REACTIONS (8)
  - ACTINOMYCOSIS [None]
  - BONE DISORDER [None]
  - INFECTION [None]
  - MAXILLOFACIAL OPERATION [None]
  - OSTEONECROSIS [None]
  - PRIMARY SEQUESTRUM [None]
  - SEQUESTRECTOMY [None]
  - TOOTH EXTRACTION [None]
